FAERS Safety Report 5382739-7 (Version None)
Quarter: 2007Q3

REPORT INFORMATION
  Report Type: 
  Country: None (occurrence: None)
  Receive Date: 20070702
  Receipt Date: 20070523
  Transmission Date: 20080115
  Serious: No
  Sender: FDA-Public Use
  Company Number: 2007PV032961

PATIENT
  Age: 58 Year
  Sex: Female

DRUGS (3)
  1. SYMLIN [Suspect]
     Indication: TYPE 2 DIABETES MELLITUS
     Dosage: 120 MCG;BID;SC; 60 MCG;BID;SC
     Route: 058
     Dates: start: 20070401, end: 20070501
  2. SYMLIN [Suspect]
     Indication: TYPE 2 DIABETES MELLITUS
     Dosage: 120 MCG;BID;SC; 60 MCG;BID;SC
     Route: 058
     Dates: start: 20070501
  3. HUMULIN 70/30 [Concomitant]

REACTIONS (1)
  - INJECTION SITE IRRITATION [None]
